FAERS Safety Report 4958283-5 (Version None)
Quarter: 2006Q1

REPORT INFORMATION
  Report Type: 
  Country: None (occurrence: None)
  Receive Date: 20060330
  Receipt Date: 20051019
  Transmission Date: 20060701
  Serious: Yes (Death)
  Sender: FDA-Public Use
  Company Number: GB-AVENTIS-200513998EU

PATIENT
  Sex: Female

DRUGS (9)
  1. CARBOCISTEINE [Suspect]
  2. FUROSEMIDE [Suspect]
  3. PREDNISOLONE [Suspect]
  4. LEVOFLOXACIN [Suspect]
  5. ATROVENT [Suspect]
     Indication: CHRONIC OBSTRUCTIVE PULMONARY DISEASE
     Route: 055
  6. AMINOPHYLLINE [Suspect]
  7. SALBUTAMOL [Suspect]
     Dosage: DOSE: 2 PUFFS
     Route: 055
  8. TRAMADOL HCL [Suspect]
  9. SALBUTAMOL NEBULISER [Concomitant]

REACTIONS (2)
  - CONDITION AGGRAVATED [None]
  - INFECTIVE EXACERBATION OF CHRONIC OBSTRUCTIVE AIRWAYS DISEASE [None]
